FAERS Safety Report 13276478 (Version 1)
Quarter: 2017Q1

REPORT INFORMATION
  Report Type: Spontaneous
  Country: US (occurrence: US)
  Receive Date: 20170227
  Receipt Date: 20170227
  Transmission Date: 20170428
  Serious: No
  Sender: FDA-Public Use
  Company Number: None

PATIENT
  Sex: Female

DRUGS (1)
  1. HUMIRA [Suspect]
     Active Substance: ADALIMUMAB
     Indication: MALAISE
     Route: 058
     Dates: start: 20160913

REACTIONS (6)
  - Inflammation [None]
  - Gait disturbance [None]
  - Arthralgia [None]
  - Joint range of motion decreased [None]
  - Pain in extremity [None]
  - Therapy non-responder [None]
